FAERS Safety Report 18670755 (Version 1)
Quarter: 2020Q4

REPORT INFORMATION
  Report Type: Spontaneous
  Country: US (occurrence: US)
  Receive Date: 20201228
  Receipt Date: 20201228
  Transmission Date: 20210114
  Serious: Yes (Hospitalization, Other)
  Sender: FDA-Public Use
  Company Number: US-CATALENT PHARMA SOLUTIONS-CAT-000194-2020

PATIENT
  Age: 24 Year
  Sex: Male

DRUGS (1)
  1. VALPROIC ACID. [Suspect]
     Active Substance: VALPROIC ACID
     Indication: AGGRESSION
     Dosage: 1500 MILLIGRAM, BID
     Route: 048

REACTIONS (2)
  - Overdose [Recovered/Resolved]
  - Hyperammonaemic encephalopathy [Recovered/Resolved]
